FAERS Safety Report 9382020 (Version 5)
Quarter: 2013Q3

REPORT INFORMATION
  Report Type: Spontaneous
  Country: US (occurrence: US)
  Receive Date: 20130703
  Receipt Date: 20130917
  Transmission Date: 20140515
  Serious: Yes (Other)
  Sender: FDA-Public Use
  Company Number: US-PFIZER INC-2013193591

PATIENT
  Sex: Female

DRUGS (2)
  1. FIBERCON [Suspect]
     Indication: BOWEL MOVEMENT IRREGULARITY
     Dosage: UNK
  2. WELCHOL [Concomitant]
     Indication: BLOOD CHOLESTEROL INCREASED
     Dosage: 625 MG, UNK

REACTIONS (3)
  - Palpitations [Not Recovered/Not Resolved]
  - Dysstasia [Not Recovered/Not Resolved]
  - Drug intolerance [Not Recovered/Not Resolved]
